FAERS Safety Report 17795216 (Version 2)
Quarter: 2020Q3

REPORT INFORMATION
  Report Type: Report from Study
  Country: CA (occurrence: CA)
  Receive Date: 20200516
  Receipt Date: 20200916
  Transmission Date: 20201102
  Serious: Yes (Death)
  Sender: FDA-Public Use
  Company Number: CA-HLS-202000527

PATIENT
  Sex: Male

DRUGS (1)
  1. CLOZARIL [Suspect]
     Active Substance: CLOZAPINE
     Indication: PRODUCT USED FOR UNKNOWN INDICATION
     Dosage: 200 MG PER DAY
     Route: 048
     Dates: start: 20020604, end: 20200510

REACTIONS (2)
  - Eating disorder [Unknown]
  - Respiratory failure [Fatal]
